FAERS Safety Report 4637317-1 (Version None)
Quarter: 2005Q2

REPORT INFORMATION
  Report Type: 
  Country: None (occurrence: None)
  Receive Date: 20050328
  Receipt Date: 20041122
  Transmission Date: 20051028
  Serious: No
  Sender: FDA-Public Use
  Company Number: USA041184440

PATIENT
  Age: 45 Year
  Sex: Male

DRUGS (1)
  1. STRATTERA [Suspect]
     Dosage: 80 MG DAY
     Dates: start: 20041112

REACTIONS (5)
  - DRY MOUTH [None]
  - ERECTILE DYSFUNCTION [None]
  - LIBIDO DECREASED [None]
  - POLLAKIURIA [None]
  - TESTICULAR PAIN [None]
